FAERS Safety Report 8118418 (Version 5)
Quarter: 2014Q1

REPORT INFORMATION
  Report Type: Report from Study
  Country: DE (occurrence: DE)
  Receive Date: 20110902
  Receipt Date: 20140227
  Transmission Date: 20141002
  Serious: Yes (Hospitalization)
  Sender: FDA-Public Use
  Company Number: DE-UCBSA-025599

PATIENT
  Sex: Male
  Weight: 73 kg

DRUGS (1)
  1. CERTOLIZUMAB PEGOL [Suspect]
     Indication: RHEUMATOID ARTHRITIS
     Dosage: N0 OF DOSES RECEIVED :10
     Route: 058
     Dates: start: 20100727, end: 201011

REACTIONS (3)
  - Skull fracture [Recovered/Resolved with Sequelae]
  - Haemorrhage intracranial [Recovered/Resolved]
  - Grand mal convulsion [Recovered/Resolved]
